FAERS Safety Report 16918445 (Version 1)
Quarter: 2019Q4

REPORT INFORMATION
  Report Type: Spontaneous
  Country: FR (occurrence: FR)
  Receive Date: 20191015
  Receipt Date: 20191015
  Transmission Date: 20200122
  Serious: Yes (Hospitalization)
  Sender: FDA-Public Use
  Company Number: FR-JNJFOC-20191016602

PATIENT
  Age: 71 Year
  Sex: Female
  Weight: 130 kg

DRUGS (8)
  1. SEROPLEX [Concomitant]
     Active Substance: ESCITALOPRAM OXALATE
  2. COVERAM [Concomitant]
     Active Substance: AMLODIPINE\PERINDOPRIL
  3. ESOMEPRAZOLE. [Concomitant]
     Active Substance: ESOMEPRAZOLE MAGNESIUM
  4. PRAVASTATIN SODIUM. [Concomitant]
     Active Substance: PRAVASTATIN SODIUM
  5. BISOPROLOL FUMARATE. [Concomitant]
     Active Substance: BISOPROLOL FUMARATE
  6. METFORMINE [Concomitant]
     Active Substance: METFORMIN HYDROCHLORIDE
  7. RIVAROXABAN [Suspect]
     Active Substance: RIVAROXABAN
     Indication: ATRIAL FIBRILLATION
     Dosage: 20 MG, UNK
     Route: 048
     Dates: start: 20080101, end: 20190819
  8. LASILIX                            /00032601/ [Concomitant]
     Active Substance: FUROSEMIDE

REACTIONS (2)
  - Paraplegia [Not Recovered/Not Resolved]
  - Extradural haematoma [Recovered/Resolved with Sequelae]

NARRATIVE: CASE EVENT DATE: 201908
